FAERS Safety Report 9557247 (Version 2)
Quarter: 2013Q4

REPORT INFORMATION
  Report Type: Spontaneous
  Country: FR (occurrence: FR)
  Receive Date: 20130926
  Receipt Date: 20131001
  Transmission Date: 20140711
  Serious: Yes (Death, Hospitalization)
  Sender: FDA-Public Use
  Company Number: FR-PFIZER INC-2013275046

PATIENT
  Age: 90 Year
  Sex: Female

DRUGS (11)
  1. EUPANTOL [Suspect]
     Indication: GASTROOESOPHAGEAL REFLUX DISEASE
     Dosage: 40 MG, DAILY
     Route: 048
     Dates: start: 20121226, end: 20121227
  2. EUPANTOL [Suspect]
     Dosage: 40 MG, 2X/DAY
     Route: 048
     Dates: start: 20121228, end: 20130105
  3. AMOXICILLIN TRIHYDRATE/CLAVULANATE POTASSIUM [Suspect]
     Dosage: UNK
     Route: 042
     Dates: start: 20121226, end: 20121228
  4. PIPERACILLIN/TAZOBACTAM [Suspect]
     Indication: PNEUMONIA ASPIRATION
     Dosage: 4/250 G/ MG 2X/DAY
     Route: 042
     Dates: start: 20121228, end: 20121231
  5. CIPROFLOXACIN ARROW [Suspect]
     Dosage: 500 MG, 1X/DAY
     Route: 048
     Dates: start: 20121228, end: 20130103
  6. TIENAM [Suspect]
     Dosage: 500 MG, DAILY
     Route: 042
     Dates: start: 20130101, end: 20130105
  7. MIANSERINE [Suspect]
     Dosage: 30 MG, UNK
     Route: 048
     Dates: start: 20121226, end: 20130105
  8. DOLIPRANE [Suspect]
     Dosage: UNK
     Dates: start: 20121226, end: 20130105
  9. SERESTA [Suspect]
     Dosage: 10 MG, UNK
     Dates: start: 20121226, end: 20130105
  10. VALACICLOVIR ARROW [Suspect]
     Dosage: 500 MG, 1X/DAY
     Dates: start: 20121227, end: 20130105
  11. CORTANCYL [Suspect]
     Dosage: 5 MG, DAILY
     Dates: start: 20121227, end: 20130105

REACTIONS (2)
  - Bicytopenia [Fatal]
  - Haemorrhagic disorder [Fatal]
